FAERS Safety Report 7350721-6 (Version None)
Quarter: 2011Q1

REPORT INFORMATION
  Report Type: 
  Country: None (occurrence: None)
  Receive Date: 20110303
  Receipt Date: 20110131
  Transmission Date: 20110831
  Serious: Yes (Hospitalization)
  Sender: FDA-Public Use
  Company Number: TW-004680

PATIENT
  Age: 74 Year
  Sex: Male

DRUGS (5)
  1. MINIRIN [Suspect]
     Indication: NOCTURIA
     Dosage: (0.1 MG QD ORAL)
     Route: 048
  2. DIOVAN [Concomitant]
  3. INDERAL [Concomitant]
  4. ARCOXIA [Concomitant]
  5. NORVASC [Concomitant]

REACTIONS (3)
  - ALTERED STATE OF CONSCIOUSNESS [None]
  - HYPONATRAEMIA [None]
  - DIZZINESS [None]
